FAERS Safety Report 9695602 (Version 1)
Quarter: 2013Q4

REPORT INFORMATION
  Report Type: Spontaneous
  Country: US (occurrence: US)
  Receive Date: 20131119
  Receipt Date: 20131119
  Transmission Date: 20140711
  Serious: No
  Sender: FDA-Public Use
  Company Number: US-PFIZER INC-2013328275

PATIENT
  Age: 65 Year
  Sex: Female
  Weight: 117.91 kg

DRUGS (1)
  1. LYRICA [Suspect]
     Indication: FIBROMYALGIA
     Dosage: 12.5 MG (BY DIVIDING ONE CAPSULE OF 25MG INTO TWO), 1X/DAY
     Route: 048
     Dates: start: 201311

REACTIONS (4)
  - Intentional drug misuse [Unknown]
  - Drug tolerance [Not Recovered/Not Resolved]
  - Rash [Not Recovered/Not Resolved]
  - Rash pruritic [Not Recovered/Not Resolved]
